FAERS Safety Report 6281637-4 (Version None)
Quarter: 2009Q3

REPORT INFORMATION
  Report Type: 
  Country: None (occurrence: None)
  Receive Date: 20090724
  Receipt Date: 20090515
  Transmission Date: 20100115
  Serious: Yes (Hospitalization)
  Sender: FDA-Public Use
  Company Number: A0785894A

PATIENT
  Age: 72 Year
  Sex: Male
  Weight: 125 kg

DRUGS (4)
  1. AVANDIA [Suspect]
     Indication: DIABETES MELLITUS
     Dosage: 8MG PER DAY
     Route: 048
     Dates: start: 20070716, end: 20080601
  2. PROSTAL [Concomitant]
  3. BENICAR [Concomitant]
  4. GEMFIBROZIL [Concomitant]

REACTIONS (1)
  - CARDIAC FAILURE CONGESTIVE [None]
